FAERS Safety Report 15561389 (Version 3)
Quarter: 2019Q1

REPORT INFORMATION
  Report Type: Report from Study
  Country: BR (occurrence: BR)
  Receive Date: 20181029
  Receipt Date: 20190228
  Transmission Date: 20190417
  Serious: Yes (Hospitalization)
  Sender: FDA-Public Use
  Company Number: BR-UCBSA-2018024116

PATIENT
  Sex: Female
  Weight: 10 kg

DRUGS (7)
  1. LEVETIRACETAM. [Suspect]
     Active Substance: LEVETIRACETAM
     Indication: AICARDI^S SYNDROME
  2. LEVETIRACETAM. [Suspect]
     Active Substance: LEVETIRACETAM
     Indication: OFF LABEL USE
  3. LEVETIRACETAM. [Suspect]
     Active Substance: LEVETIRACETAM
     Indication: SEIZURE
     Dosage: 3 ML, 2X/DAY (BID)
     Route: 048
     Dates: start: 20171025
  4. LEVETIRACETAM. [Suspect]
     Active Substance: LEVETIRACETAM
     Indication: INFANTILE SPASMS
     Dosage: 3.5 ML, 2X/DAY (BID)
     Route: 048
     Dates: start: 2017
  5. TOPIRAMATO [Concomitant]
     Active Substance: TOPIRAMATE
     Indication: SEIZURE
     Dosage: TWICE A DAY
     Dates: start: 2017
  6. VIGABATRIN. [Concomitant]
     Active Substance: VIGABATRIN
     Indication: SEIZURE
     Dosage: TWICE A DAY
     Dates: start: 2017
  7. NITRAZEPAM [Concomitant]
     Active Substance: NITRAZEPAM
     Indication: SEIZURE
     Dosage: TWICE A DAY
     Dates: start: 2017

REACTIONS (5)
  - Pneumonia [Recovered/Resolved]
  - Somnolence [Recovered/Resolved]
  - Decreased appetite [Recovered/Resolved]
  - Off label use [Unknown]
  - Aspiration [Recovered/Resolved]

NARRATIVE: CASE EVENT DATE: 2017
